FAERS Safety Report 9300116 (Version 5)
Quarter: 2013Q3

REPORT INFORMATION
  Report Type: Report from Study
  Country: DE (occurrence: DE)
  Receive Date: 20130521
  Receipt Date: 20130827
  Transmission Date: 20140515
  Serious: Yes (Death, Hospitalization)
  Sender: FDA-Public Use
  Company Number: DE-ROCHE-1226928

PATIENT
  Age: 77 Year
  Sex: Male
  Weight: 72 kg

DRUGS (8)
  1. CAPECITABINE [Suspect]
     Indication: COLON CANCER
     Dosage: TWO WEEK FOLLOWED BY ONE WEEK BREAK
     Route: 048
     Dates: start: 20130403
  2. CAPECITABINE [Suspect]
     Route: 048
     Dates: start: 20130214, end: 201306
  3. BEVACIZUMAB [Suspect]
     Indication: COLON CANCER
     Route: 042
     Dates: start: 20130403, end: 20130628
  4. METOHEXAL [Concomitant]
     Indication: HYPERTENSION
     Route: 048
  5. MIRTAZAPIN [Concomitant]
     Indication: DEPRESSION
     Route: 048
  6. ENALAPRIL [Concomitant]
     Indication: HYPERTENSION
     Route: 048
  7. TORASEMID [Concomitant]
     Indication: POLYURIA
     Route: 065
  8. PRAVASTATIN [Concomitant]
     Indication: HYPERCHOLESTEROLAEMIA
     Route: 048

REACTIONS (5)
  - Malignant neoplasm progression [Fatal]
  - Altered state of consciousness [Unknown]
  - Pyrexia [Unknown]
  - Blood pressure increased [Unknown]
  - Sepsis [Recovered/Resolved]
